FAERS Safety Report 5029430-4 (Version None)
Quarter: 2006Q2

REPORT INFORMATION
  Report Type: 
  Country: None (occurrence: None)
  Receive Date: 20060613
  Receipt Date: 20060609
  Transmission Date: 20061013
  Serious: Yes (Other)
  Sender: FDA-Public Use
  Company Number: USA-2006-0024401

PATIENT
  Age: 41 Year
  Sex: Female

DRUGS (1)
  1. CEFDITOREN PIVOXIL (SIMILAR TO NDA 21-222) (CEFDITOREN PIVOXIL) [Suspect]
     Dosage: ORAL
     Route: 048
     Dates: start: 20050401

REACTIONS (1)
  - OCULOMUCOCUTANEOUS SYNDROME [None]
